FAERS Safety Report 4388297-8 (Version None)
Quarter: 2004Q2

REPORT INFORMATION
  Report Type: 
  Country: None (occurrence: None)
  Receive Date: 20040625
  Receipt Date: 20040615
  Transmission Date: 20050107
  Serious: No
  Sender: FDA-Public Use
  Company Number: D01200402132

PATIENT
  Age: 62 Year
  Sex: Male

DRUGS (4)
  1. FONDAPARINUX - SOLUTION - [Suspect]
     Indication: MYOCARDIAL INFARCTION
     Dosage: 2.5 MG QD SUBCUTANEOUS
     Route: 058
     Dates: start: 20031219, end: 20031223
  2. ASPIRIN [Concomitant]
  3. PLAVIX [Concomitant]
  4. INTEGRILIN [Concomitant]

REACTIONS (2)
  - MEDICAL DEVICE COMPLICATION [None]
  - THROMBOSIS [None]
